FAERS Safety Report 7166260-1 (Version None)
Quarter: 2010Q4

REPORT INFORMATION
  Report Type: 
  Country: None (occurrence: None)
  Receive Date: 20101216
  Receipt Date: 20101209
  Transmission Date: 20110411
  Serious: Yes (Hospitalization, Other)
  Sender: FDA-Public Use
  Company Number: US-ALEXION-A201001495

PATIENT
  Sex: Male

DRUGS (3)
  1. SOLIRIS [Suspect]
     Indication: PAROXYSMAL NOCTURNAL HAEMOGLOBINURIA
     Dosage: 900 MG, Q2W
     Route: 042
     Dates: start: 20100701
  2. POTASSIUM CHLORIDE [Concomitant]
     Dosage: UNK
  3. BACTRIM [Concomitant]
     Dosage: UNK

REACTIONS (4)
  - CHEST PAIN [None]
  - HAEMOGLOBIN DECREASED [None]
  - INFECTION [None]
  - TENDERNESS [None]
